FAERS Safety Report 7001237-8 (Version None)
Quarter: 2010Q3

REPORT INFORMATION
  Report Type: 
  Country: None (occurrence: None)
  Receive Date: 20100920
  Receipt Date: 20100604
  Transmission Date: 20110219
  Serious: No
  Sender: FDA-Public Use
  Company Number: US-ASTRAZENECA-2010SE26014

PATIENT
  Age: 44 Year
  Sex: Female
  Weight: 54.4 kg

DRUGS (2)
  1. SEROQUEL [Suspect]
     Indication: SLEEP DISORDER
     Route: 048
     Dates: start: 20090101
  2. SEROQUEL [Suspect]
     Route: 048

REACTIONS (4)
  - EYELID OEDEMA [None]
  - JOINT SWELLING [None]
  - MIDDLE INSOMNIA [None]
  - SWELLING [None]
